FAERS Safety Report 8907791 (Version 1)
Quarter: 2012Q4

REPORT INFORMATION
  Report Type: 
  Country: US (occurrence: US)
  Receive Date: 20121113
  Receipt Date: 20121113
  Transmission Date: 20130627
  Serious: No
  Sender: FDA-Public Use
  Company Number: US-AMGEN-USASP2012039479

PATIENT
  Age: 57 Year
  Sex: Male
  Weight: 136.5 kg

DRUGS (5)
  1. ENBREL [Suspect]
     Indication: PRODUCT USED FOR UNKNOWN INDICATION
     Dosage: 50 mg, qwk
     Route: 058
  2. WELLBUTRIN XL [Concomitant]
     Dosage: 150 mg, UNK
  3. LEXAPRO [Concomitant]
     Dosage: 10 mg, UNK
  4. VITAMIN C                          /00008001/ [Concomitant]
     Dosage: 500 mg CR, UNK
  5. PERCOCET                           /00446701/ [Concomitant]
     Dosage: 7.5-500, UNK

REACTIONS (1)
  - Headache [Unknown]
